FAERS Safety Report 7167751-X (Version None)
Quarter: 2010Q4

REPORT INFORMATION
  Report Type: 
  Country: None (occurrence: None)
  Receive Date: 20101216
  Receipt Date: 20101001
  Transmission Date: 20110411
  Serious: No
  Sender: FDA-Public Use
  Company Number: A0884477A

PATIENT
  Age: 58 Year
  Sex: Male

DRUGS (1)
  1. NICORETTE [Suspect]
     Indication: SMOKING CESSATION THERAPY

REACTIONS (1)
  - EJACULATION FAILURE [None]
